FAERS Safety Report 12669851 (Version 1)
Quarter: 2016Q3

REPORT INFORMATION
  Report Type: Report from Study
  Country: BR (occurrence: BR)
  Receive Date: 20160819
  Receipt Date: 20160819
  Transmission Date: 20161109
  Serious: Yes (Other)
  Sender: FDA-Public Use
  Company Number: PHHY2016BR113776

PATIENT
  Sex: Female
  Weight: 66 kg

DRUGS (4)
  1. EXELON PATCH [Suspect]
     Active Substance: RIVASTIGMINE
     Dosage: PATCH 15CM2, QD
     Route: 062
  2. EXELON PATCH [Suspect]
     Active Substance: RIVASTIGMINE
     Indication: VASCULAR DEMENTIA
     Dosage: PATCH 5CM2, QD
     Route: 062
     Dates: start: 2013
  3. EXELON PATCH [Suspect]
     Active Substance: RIVASTIGMINE
     Dosage: PATCH 10CM2, QD
     Route: 062
  4. EXELON PATCH [Suspect]
     Active Substance: RIVASTIGMINE
     Dosage: PATCH 10CM2, QD
     Route: 062

REACTIONS (4)
  - Condition aggravated [Unknown]
  - Product use issue [Unknown]
  - Vascular dementia [Unknown]
  - Drug ineffective [Unknown]
